FAERS Safety Report 7088304-8 (Version None)
Quarter: 2010Q4

REPORT INFORMATION
  Report Type: 
  Country: None (occurrence: None)
  Receive Date: 20101108
  Receipt Date: 20101026
  Transmission Date: 20110411
  Serious: Yes (Other)
  Sender: FDA-Public Use
  Company Number: US-BAYER-201039417NA

PATIENT
  Age: 29 Year
  Sex: Female

DRUGS (6)
  1. YAZ [Suspect]
     Indication: PRODUCT USED FOR UNKNOWN INDICATION
     Route: 048
     Dates: start: 20080312, end: 20090101
  2. YAZ [Suspect]
     Route: 048
     Dates: start: 20040123, end: 20040625
  3. YAZ [Suspect]
     Route: 048
     Dates: start: 20061003, end: 20070401
  4. YASMIN [Suspect]
     Indication: PRODUCT USED FOR UNKNOWN INDICATION
     Route: 048
     Dates: start: 20080321, end: 20090101
  5. YASMIN [Suspect]
     Route: 048
     Dates: start: 20040123, end: 20040625
  6. YASMIN [Suspect]
     Route: 048
     Dates: start: 20061003, end: 20070401

REACTIONS (1)
  - CHOLECYSTECTOMY [None]
